FAERS Safety Report 4314162-8 (Version None)
Quarter: 2004Q1

REPORT INFORMATION
  Report Type: 
  Country: None (occurrence: None)
  Receive Date: 20040308
  Receipt Date: 20040308
  Transmission Date: 20041129
  Serious: Yes (Other)
  Sender: FDA-Public Use
  Company Number: None

PATIENT
  Age: 66 Year
  Sex: Male
  Weight: 83.9154 kg

DRUGS (1)
  1. GLIPIZIDE [Suspect]
     Indication: DIABETES MELLITUS NON-INSULIN-DEPENDENT
     Dosage: 1 TAB BY MOUTH TWICE DAILY
     Route: 048

REACTIONS (2)
  - BLOOD GLUCOSE INCREASED [None]
  - PHARMACEUTICAL PRODUCT COMPLAINT [None]
